FAERS Safety Report 18681484 (Version 2)
Quarter: 2021Q1

REPORT INFORMATION
  Report Type: Spontaneous
  Country: US (occurrence: US)
  Receive Date: 20201230
  Receipt Date: 20210104
  Transmission Date: 20210419
  Serious: Yes (Other)
  Sender: FDA-Public Use
  Company Number: US-PFIZER INC-2020509840

PATIENT
  Age: 75 Year
  Sex: Male
  Weight: 88 kg

DRUGS (13)
  1. ETOMIDATE. [Suspect]
     Active Substance: ETOMIDATE
     Indication: ANAESTHESIA
     Dosage: 26 MG (0.3 MG/KG)
  2. NITROUS OXIDE. [Concomitant]
     Active Substance: NITROUS OXIDE
     Indication: ANAESTHESIA
     Dosage: UNK (50% NITROUS OXIDE IN O2)
  3. SUCCINYLCHOLINE BROMIDE [Concomitant]
     Active Substance: SUXAMETHONIUM BROMIDE
     Indication: ANAESTHESIA
     Dosage: 120 MG (1.4 MG/KG)
  4. FENTANYL. [Concomitant]
     Active Substance: FENTANYL
     Indication: ANAESTHESIA
     Dosage: 0.25 MG
  5. ATROPINE. [Concomitant]
     Active Substance: ATROPINE
     Indication: NEUROMUSCULAR BLOCKADE REVERSAL
     Dosage: 1.2 MG
  6. 5% DEXTROSE [Concomitant]
     Active Substance: DEXTROSE
     Indication: VEHICLE SOLUTION USE
     Dosage: 500 ML IN 5% DEXTROSE IN HALF NORMAL SALINE
  7. PANCURONIUM BROMIDE. [Concomitant]
     Active Substance: PANCURONIUM BROMIDE
     Indication: ANAESTHESIA
     Dosage: 8 MG
  8. LIDOCAINE. [Concomitant]
     Active Substance: LIDOCAINE
     Indication: ANAESTHESIA
     Dosage: 4 ML (SPRAYED)
  9. DIPHENHYDRAMINE. [Concomitant]
     Active Substance: DIPHENHYDRAMINE
     Indication: PREMEDICATION
     Dosage: 50 MG (2 HR BEFORE SURGERY)
     Route: 030
  10. FENTANYL. [Concomitant]
     Active Substance: FENTANYL
     Dosage: 0.475 MG
  11. NORMAL SALINE [Concomitant]
     Active Substance: SODIUM CHLORIDE
     Indication: VEHICLE SOLUTION USE
     Dosage: 500 ML IN 5% DEXTROSE IN HALF NORMAL SALINE
  12. ETOMIDATE. [Suspect]
     Active Substance: ETOMIDATE
     Dosage: 500 MG (IN 500 ML5% DEXTROSE IN HALF NORMAL SALINE)
     Route: 041
  13. NEOSTIGMINE. [Concomitant]
     Active Substance: NEOSTIGMINE METHYLSULFATE
     Indication: NEUROMUSCULAR BLOCKADE REVERSAL
     Dosage: 3 MG

REACTIONS (1)
  - Myoclonus [Recovered/Resolved]
